FAERS Safety Report 14826492 (Version 2)
Quarter: 2018Q2

REPORT INFORMATION
  Report Type: Spontaneous
  Country: NL (occurrence: NL)
  Receive Date: 20180430
  Receipt Date: 20180507
  Transmission Date: 20180711
  Serious: Yes (Hospitalization)
  Sender: FDA-Public Use
  Company Number: PHHY2018NL070375

PATIENT
  Age: 15 Month
  Sex: Female

DRUGS (1)
  1. ZOFRAN [Suspect]
     Active Substance: ONDANSETRON HYDROCHLORIDE
     Indication: NAUSEA
     Dosage: 2.5 ML, PRN
     Route: 065

REACTIONS (4)
  - Restlessness [Unknown]
  - Blepharospasm [Unknown]
  - Pyrexia [Unknown]
  - Oculogyric crisis [Unknown]

NARRATIVE: CASE EVENT DATE: 20180418
